FAERS Safety Report 25134924 (Version 2)
Quarter: 2025Q2

REPORT INFORMATION
  Report Type: Spontaneous
  Country: JP (occurrence: JP)
  Receive Date: 20250328
  Receipt Date: 20250610
  Transmission Date: 20250717
  Serious: Yes (Hospitalization)
  Sender: BAYER HEALTHCARE PHARMACEUTICALS INC.
  Company Number: JP-BAYER-2025A037568

PATIENT
  Age: 41 Year
  Sex: Female

DRUGS (1)
  1. MIRENA [Suspect]
     Active Substance: LEVONORGESTREL
     Indication: Contraception
     Dosage: 20?G/DAY
     Route: 015
     Dates: start: 20240614, end: 20240802

REACTIONS (5)
  - Vaginal perforation [Recovered/Resolved]
  - Device expulsion [Recovered/Resolved]
  - Procedural pain [Recovering/Resolving]
  - Ovarian cyst [Recovered/Resolved]
  - Device issue [None]

NARRATIVE: CASE EVENT DATE: 20240614
